FAERS Safety Report 8224815-7 (Version None)
Quarter: 2012Q1

REPORT INFORMATION
  Report Type: 
  Country: None (occurrence: None)
  Receive Date: 20120321
  Receipt Date: 20120313
  Transmission Date: 20120608
  Serious: Yes (Hospitalization, Other)
  Sender: FDA-Public Use
  Company Number: JP-ABBOTT-12P-087-0906972-00

PATIENT
  Sex: Male
  Weight: 62.9 kg

DRUGS (13)
  1. HERBAL MEDICINE (DAIKENCHUTO) [Concomitant]
     Indication: PROPHYLAXIS
     Route: 048
     Dates: start: 20110527
  2. POLAPREZINC [Concomitant]
     Indication: PROPHYLAXIS AGAINST GASTROINTESTINAL ULCER
     Dosage: 150MG DAILY
     Route: 048
     Dates: start: 20111210
  3. MESALAMINE [Concomitant]
     Indication: CROHN'S DISEASE
     Route: 048
     Dates: start: 20110527
  4. TPN [Concomitant]
     Dates: start: 20110725
  5. HERBAL MEDICINE (DAIKENCHUTO) [Concomitant]
     Indication: INTESTINAL OBSTRUCTION
  6. FOLIC ACID [Concomitant]
     Indication: BLOOD FOLATE DECREASED
     Dates: start: 20111210
  7. HUMIRA [Suspect]
     Indication: CROHN'S DISEASE
     Route: 058
     Dates: start: 20111210, end: 20111210
  8. SODIUM FERROUS CITRATE [Concomitant]
     Indication: ANAEMIA
     Route: 048
     Dates: start: 20110527
  9. HUMIRA [Suspect]
  10. LANSOPRAZOLE [Concomitant]
     Indication: PROPHYLAXIS AGAINST GASTROINTESTINAL ULCER
     Route: 048
     Dates: start: 20110929
  11. URSODIOL [Concomitant]
     Indication: HEPATIC FUNCTION ABNORMAL
     Dates: start: 20110527
  12. HUMIRA [Suspect]
     Dates: end: 20120114
  13. TPN [Concomitant]
     Indication: CROHN'S DISEASE
     Dates: start: 20110725

REACTIONS (3)
  - AGRANULOCYTOSIS [None]
  - PYREXIA [None]
  - INFLUENZA [None]
